FAERS Safety Report 14195747 (Version 1)
Quarter: 2017Q4

REPORT INFORMATION
  Report Type: Report from Study
  Country: IT (occurrence: IT)
  Receive Date: 20171116
  Receipt Date: 20171116
  Transmission Date: 20180321
  Serious: Yes (Other)
  Sender: FDA-Public Use
  Company Number: IT-MYLANLABS-2017M1071806

PATIENT
  Age: 68 Year
  Sex: Female

DRUGS (3)
  1. KLACID 250 MG COMPRESSE RIVESTITE [Suspect]
     Active Substance: CLARITHROMYCIN
     Indication: ASTHMA
     Dosage: 1 DF DAILY
     Route: 048
  2. MEDROL [Concomitant]
     Active Substance: METHYLPREDNISOLONE
     Indication: ASTHMA
     Dosage: 1 DF
     Route: 048
  3. RESVIS FLUID XR [Concomitant]
     Indication: INCREASED BRONCHIAL SECRETION
     Dosage: UNK, QD

REACTIONS (1)
  - Anaphylactic shock [Recovered/Resolved]

NARRATIVE: CASE EVENT DATE: 20171101
